FAERS Safety Report 16591585 (Version 1)
Quarter: 2019Q3

REPORT INFORMATION
  Report Type: Spontaneous
  Country: ES (occurrence: ES)
  Receive Date: 20190718
  Receipt Date: 20190718
  Transmission Date: 20191004
  Serious: Yes (Death)
  Sender: FDA-Public Use
  Company Number: ES-009507513-1907ESP004209

PATIENT
  Age: 92 Year
  Sex: Female

DRUGS (4)
  1. ALDACTONE [Interacting]
     Active Substance: SPIRONOLACTONE
     Indication: CARDIAC FAILURE
     Dosage: 25 MILLIGRAM, QD
     Route: 048
     Dates: start: 20180724, end: 20190610
  2. HIGROTONA [Interacting]
     Active Substance: CHLORTHALIDONE
     Indication: HYPERTENSION
     Dosage: ONE TABLET WITH THE AFTERNOON SNACK ONLY ON MONDAYS AND THURSDAYS)
     Route: 048
     Dates: start: 20190506, end: 20190610
  3. COZAAR [Suspect]
     Active Substance: LOSARTAN POTASSIUM
     Indication: CARDIAC FAILURE
     Dosage: 12.5 MILLIGRAM, QD
     Route: 048
     Dates: start: 20170711, end: 20190610
  4. FUROSEMIDE. [Interacting]
     Active Substance: FUROSEMIDE
     Indication: CARDIAC FAILURE
     Dosage: 40 MG. 1 TABLET AT BREAKFAST AND 1 TABLET AT LUNCH)
     Route: 048
     Dates: start: 20150616, end: 20190620

REACTIONS (2)
  - Hyponatraemia [Fatal]
  - Dehydration [Fatal]

NARRATIVE: CASE EVENT DATE: 20190610
